FAERS Safety Report 7088805-2 (Version None)
Quarter: 2010Q4

REPORT INFORMATION
  Report Type: 
  Country: None (occurrence: None)
  Receive Date: 20101108
  Receipt Date: 20101027
  Transmission Date: 20110411
  Serious: Yes (Hospitalization, Other)
  Sender: FDA-Public Use
  Company Number: BR-MEDIMMUNE-MEDI-0011375

PATIENT
  Sex: Male
  Weight: 5.85 kg

DRUGS (10)
  1. SYNAGIS [Suspect]
     Indication: BRONCHOPULMONARY DYSPLASIA
     Route: 030
     Dates: start: 20100614, end: 20100614
  2. SYNAGIS [Suspect]
     Indication: CARDIOMYOPATHY
     Route: 030
     Dates: start: 20100819, end: 20100819
  3. SYNAGIS [Suspect]
  4. DOMPERIDONE [Concomitant]
     Route: 048
     Dates: start: 20100125
  5. RANITIDINE HYDROCHLORIDE [Concomitant]
     Route: 048
     Dates: start: 20100125
  6. BUDESONIDE [Concomitant]
     Indication: BRONCHOPULMONARY DYSPLASIA
     Route: 055
     Dates: start: 20100125
  7. BUDESONIDE [Concomitant]
  8. VITAMIN TAB [Concomitant]
     Dates: start: 20100125
  9. FERROUS SULFATE [Concomitant]
     Route: 048
     Dates: start: 20100125
  10. AZITHROMYCIN [Concomitant]
     Route: 048
     Dates: start: 20100701

REACTIONS (6)
  - BRONCHIOLITIS [None]
  - COUGH [None]
  - EYE DISCHARGE [None]
  - RESPIRATORY ARREST [None]
  - RHINITIS [None]
  - SKIN DISCOLOURATION [None]
